FAERS Safety Report 25832336 (Version 2)
Quarter: 2025Q4

REPORT INFORMATION
  Report Type: Spontaneous
  Country: US (occurrence: US)
  Receive Date: 20250922
  Receipt Date: 20251026
  Transmission Date: 20260118
  Serious: No
  Sender: TRAVERE THERAPEUTICS
  Company Number: US-TRAVERE-2025TVT01418

PATIENT
  Age: 66 Year
  Sex: Male

DRUGS (2)
  1. FILSPARI [Suspect]
     Active Substance: SPARSENTAN
     Indication: IgA nephropathy
     Route: 048
     Dates: start: 20250807
  2. FILSPARI [Suspect]
     Active Substance: SPARSENTAN
     Indication: Renal transplant
     Route: 048
     Dates: start: 20250822

REACTIONS (3)
  - Hypotension [Unknown]
  - Blood glucose increased [Unknown]
  - Dizziness [Unknown]
